FAERS Safety Report 4385745-4 (Version None)
Quarter: 2004Q2

REPORT INFORMATION
  Report Type: 
  Country: None (occurrence: None)
  Receive Date: 20040623
  Receipt Date: 20040607
  Transmission Date: 20050107
  Serious: Yes (Other)
  Sender: FDA-Public Use
  Company Number: 2004-UK-00548UK

PATIENT
  Age: 37 Year
  Sex: Female

DRUGS (3)
  1. NEVIRAPINE (EU/1/97/055/001) (NEVIRAPINE) (NR) (NEVIRAPINE) [Suspect]
     Indication: PREGNANCY
     Dosage: 200 MG
     Dates: start: 20040315, end: 20040330
  2. NEVIRAPINE (EU/1/97/055/001) (NEVIRAPINE) (NR) (NEVIRAPINE) [Suspect]
     Indication: SYSTEMIC ANTIVIRAL TREATMENT
     Dosage: 200 MG
     Dates: start: 20040315, end: 20040330
  3. COMBIVIR [Concomitant]

REACTIONS (4)
  - DRUG EXPOSURE DURING PREGNANCY [None]
  - FOETAL MALFORMATION [None]
  - NUCHAL RIGIDITY [None]
  - ULTRASOUND ANTENATAL SCREEN ABNORMAL [None]
